FAERS Safety Report 9429985 (Version 1)
Quarter: 2013Q3

REPORT INFORMATION
  Report Type: Spontaneous
  Country: US (occurrence: US)
  Receive Date: 20130730
  Receipt Date: 20130730
  Transmission Date: 20140515
  Serious: No
  Sender: FDA-Public Use
  Company Number: US-ABBOTT-13P-163-1051156-00

PATIENT
  Sex: Female
  Weight: 95.34 kg

DRUGS (2)
  1. NIASPAN (COATED) [Suspect]
     Indication: BLOOD CHOLESTEROL INCREASED
     Dates: start: 2009, end: 2009
  2. NIASPAN (COATED) [Suspect]
     Dates: start: 2009, end: 2009

REACTIONS (1)
  - Flushing [Recovered/Resolved]
